FAERS Safety Report 24257365 (Version 3)
Quarter: 2024Q3

REPORT INFORMATION
  Report Type: Report from Study
  Country: US (occurrence: US)
  Receive Date: 20240828
  Receipt Date: 20240911
  Transmission Date: 20241017
  Serious: Yes (Other)
  Sender: NOVARTIS
  Company Number: US-002147023-NVSC2024US172808

PATIENT
  Sex: Female

DRUGS (2)
  1. LEQVIO [Suspect]
     Active Substance: INCLISIRAN SODIUM
     Indication: Product used for unknown indication
     Dosage: 284 MG (FIRST INJECTION)
     Route: 065
     Dates: start: 202401, end: 202401
  2. LEQVIO [Suspect]
     Active Substance: INCLISIRAN SODIUM
     Dosage: 284 MG (2ND INJECTION)
     Route: 065
     Dates: start: 202405, end: 202405

REACTIONS (3)
  - Decreased immune responsiveness [Unknown]
  - Respiratory tract infection [Unknown]
  - Hypersensitivity [Unknown]
